FAERS Safety Report 6226716-2 (Version None)
Quarter: 2009Q2

REPORT INFORMATION
  Report Type: 
  Country: None (occurrence: None)
  Receive Date: 20090610
  Receipt Date: 20090605
  Transmission Date: 20091009
  Serious: Yes (Hospitalization)
  Sender: FDA-Public Use
  Company Number: FR-WYE-G03800309

PATIENT
  Age: 4 Year
  Sex: Male

DRUGS (1)
  1. ADVIL [Suspect]
     Indication: PHARYNGITIS
     Dosage: 2 TO 3 DOSE-FORM TOTAL DAILY
     Route: 048
     Dates: start: 20090326, end: 20090331

REACTIONS (4)
  - DECREASED APPETITE [None]
  - PHARYNGEAL ABSCESS [None]
  - SUPERINFECTION [None]
  - TORTICOLLIS [None]
